FAERS Safety Report 16481339 (Version 1)
Quarter: 2019Q2

REPORT INFORMATION
  Report Type: Spontaneous
  Country: US (occurrence: US)
  Receive Date: 20190627
  Receipt Date: 20190627
  Transmission Date: 20190711
  Serious: No
  Sender: FDA-Public Use
  Company Number: US-MYLANLABS-2018M1085350

PATIENT

DRUGS (1)
  1. EXTENDED PHENYTOIN SODIUM [Suspect]
     Active Substance: PHENYTOIN SODIUM
     Indication: SEIZURE
     Dosage: 100 MG, TID
     Route: 065

REACTIONS (2)
  - Therapeutic product effect decreased [Unknown]
  - Drug level decreased [Unknown]
